FAERS Safety Report 5340625-2 (Version None)
Quarter: 2007Q2

REPORT INFORMATION
  Report Type: 
  Country: None (occurrence: None)
  Receive Date: 20070531
  Receipt Date: 20070521
  Transmission Date: 20071010
  Serious: Yes (Other)
  Sender: FDA-Public Use
  Company Number: SE-PFIZER INC-2007042408

PATIENT
  Sex: Female

DRUGS (4)
  1. ZELDOX (CAPSULES) [Suspect]
  2. CLOMIPRAMINE HCL [Concomitant]
  3. LITHIUM CARBONATE [Concomitant]
  4. METFORMIN HCL [Concomitant]

REACTIONS (3)
  - ELECTROCARDIOGRAM CHANGE [None]
  - ELECTROCARDIOGRAM QT PROLONGED [None]
  - ELECTROCARDIOGRAM T WAVE ABNORMAL [None]
